FAERS Safety Report 6640435-X (Version None)
Quarter: 2010Q1

REPORT INFORMATION
  Report Type: 
  Country: None (occurrence: None)
  Receive Date: 20100318
  Receipt Date: 20100308
  Transmission Date: 20100710
  Serious: Yes (Other)
  Sender: FDA-Public Use
  Company Number: GB-PFIZER INC-2010029562

PATIENT
  Age: 27 Year
  Sex: Female
  Weight: 56.24 kg

DRUGS (2)
  1. CHAMPIX [Suspect]
     Indication: SMOKING CESSATION THERAPY
     Dosage: 1 MG, 2X/DAY
     Route: 048
     Dates: start: 20100125, end: 20100217
  2. HYDROXYCHLOROQUINE SULFATE [Concomitant]

REACTIONS (4)
  - DEPRESSED MOOD [None]
  - NIGHTMARE [None]
  - SLEEP DISORDER [None]
  - SOMNAMBULISM [None]
